FAERS Safety Report 20456393 (Version 1)
Quarter: 2022Q1

REPORT INFORMATION
  Report Type: Spontaneous
  Country: US (occurrence: None)
  Receive Date: 20220210
  Receipt Date: 20220210
  Transmission Date: 20220423
  Serious: Yes (Other)
  Sender: FDA-Public Use
  Company Number: None

PATIENT
  Sex: Male

DRUGS (2)
  1. METOPROLOL [Suspect]
     Active Substance: METOPROLOL
     Indication: Hypertensive heart disease
  2. CARVEDILOL [Suspect]
     Active Substance: CARVEDILOL
     Indication: Hypertensive heart disease

REACTIONS (2)
  - Fatigue [None]
  - Drug ineffective [None]
